FAERS Safety Report 14117984 (Version 1)
Quarter: 2017Q4

REPORT INFORMATION
  Report Type: Spontaneous
  Country: US (occurrence: US)
  Receive Date: 20171023
  Receipt Date: 20171023
  Transmission Date: 20180321
  Serious: No
  Sender: FDA-Public Use
  Company Number: US-ALLERGAN-1672557US

PATIENT
  Sex: Male

DRUGS (3)
  1. MOM [Concomitant]
     Active Substance: MAGNESIUM HYDROXIDE
     Indication: CONSTIPATION
  2. LINZESS [Suspect]
     Active Substance: LINACLOTIDE
     Indication: CONSTIPATION
     Dosage: 290 MG, UNK
     Route: 048
     Dates: start: 2015
  3. DULCOLAX NOS [Concomitant]
     Active Substance: BISACODYL OR DOCUSATE SODIUM
     Indication: CONSTIPATION

REACTIONS (3)
  - Therapeutic response decreased [Unknown]
  - Drug dose omission [Unknown]
  - Off label use [Unknown]
